FAERS Safety Report 8131375-8 (Version None)
Quarter: 2012Q1

REPORT INFORMATION
  Report Type: 
  Country: None (occurrence: None)
  Receive Date: 20120207
  Receipt Date: 20120129
  Transmission Date: 20120608
  Serious: Yes (Other)
  Sender: FDA-Public Use
  Company Number: 1000027527

PATIENT
  Age: 82 Year
  Sex: Female

DRUGS (3)
  1. NAMENDA [Suspect]
     Indication: DEMENTIA
     Route: 048
     Dates: start: 20110101, end: 20120128
  2. AMLODIPINE [Concomitant]
  3. LEVOTHYROXINE (LEVOTHYROXINE SODIUM) (LEVOTHYROXINE SODIUM) [Concomitant]

REACTIONS (4)
  - AGITATION [None]
  - CONFUSIONAL STATE [None]
  - AGGRESSION [None]
  - ABNORMAL BEHAVIOUR [None]
